FAERS Safety Report 23743799 (Version 1)
Quarter: 2024Q2

REPORT INFORMATION
  Report Type: Spontaneous
  Country: US (occurrence: US)
  Receive Date: 20240415
  Receipt Date: 20240415
  Transmission Date: 20240716
  Serious: No
  Sender: FDA-Public Use
  Company Number: US-002147023-NVSC2023US118917

PATIENT
  Sex: Female

DRUGS (8)
  1. CLIMARA [Suspect]
     Active Substance: ESTRADIOL
     Indication: Product used for unknown indication
     Dosage: UNK
     Route: 065
  2. ESTRADERM [Suspect]
     Active Substance: ESTRADIOL
     Indication: Product used for unknown indication
     Dosage: UNK, EARLY 1990^S
     Route: 065
  3. ESTRADIOL [Suspect]
     Active Substance: ESTRADIOL
     Indication: Product used for unknown indication
     Dosage: UNK
     Route: 065
  4. ESTRADIOL [Suspect]
     Active Substance: ESTRADIOL
     Indication: Product used for unknown indication
     Dosage: UNK
     Route: 065
  5. VIVELLE-DOT [Suspect]
     Active Substance: ESTRADIOL
     Indication: Product used for unknown indication
     Dosage: UNK, (0.1), BIW
     Route: 062
     Dates: end: 202303
  6. VIVELLE-DOT [Suspect]
     Active Substance: ESTRADIOL
     Dosage: UNK
     Route: 065
  7. VIVELLE-DOT [Suspect]
     Active Substance: ESTRADIOL
     Dosage: 0.1MG/1D 8TTS
     Route: 065
  8. LACTAT [Concomitant]
     Indication: Lactose intolerance
     Dosage: UNK
     Route: 065

REACTIONS (20)
  - Rash [Unknown]
  - Bladder irritation [Unknown]
  - Feeling abnormal [Recovering/Resolving]
  - Feeling hot [Recovered/Resolved]
  - Hyperhidrosis [Recovering/Resolving]
  - Anxiety [Recovering/Resolving]
  - Crying [Recovering/Resolving]
  - Blood oestrogen decreased [Unknown]
  - Fatigue [Recovered/Resolved]
  - Urethral disorder [Unknown]
  - Brain fog [Recovering/Resolving]
  - Abdominal discomfort [Recovering/Resolving]
  - Depression [Unknown]
  - Dizziness [Recovering/Resolving]
  - Product quality issue [Unknown]
  - Product storage error [Unknown]
  - Drug ineffective [Unknown]
  - Skin irritation [Unknown]
  - Wrong technique in product usage process [Unknown]
  - Product adhesion issue [Unknown]
